FAERS Safety Report 25940163 (Version 1)
Quarter: 2025Q4

REPORT INFORMATION
  Report Type: Spontaneous
  Country: US (occurrence: US)
  Receive Date: 20251020
  Receipt Date: 20251020
  Transmission Date: 20260118
  Serious: Yes (Death)
  Sender: NOVARTIS
  Company Number: US-002147023-NVSC2025US161594

PATIENT
  Sex: Female

DRUGS (1)
  1. ALPELISIB [Suspect]
     Active Substance: ALPELISIB
     Indication: Breast cancer
     Dosage: RECEIVED TREATMENT FOR 9 MONTHS BEFORE LACK OF EFFICACY WAS NOTED.
     Route: 065

REACTIONS (1)
  - Nervous system disorder [Fatal]
